FAERS Safety Report 13949777 (Version 3)
Quarter: 2018Q1

REPORT INFORMATION
  Report Type: Spontaneous
  Country: US (occurrence: US)
  Receive Date: 20170908
  Receipt Date: 20180205
  Transmission Date: 20180508
  Serious: Yes (Hospitalization)
  Sender: FDA-Public Use
  Company Number: US-DSJP-DSU-2017-135719

PATIENT

DRUGS (1)
  1. BENICAR HCT [Suspect]
     Active Substance: HYDROCHLOROTHIAZIDE\OLMESARTAN MEDOXOMIL
     Indication: PRODUCT USED FOR UNKNOWN INDICATION
     Dosage: 40/25MG, QD
     Route: 048
     Dates: start: 20040817, end: 20171215

REACTIONS (6)
  - Weight decreased [Recovered/Resolved]
  - Haemorrhoids [Unknown]
  - Cholelithiasis [Not Recovered/Not Resolved]
  - Gastritis [Unknown]
  - Drug ineffective [Recovered/Resolved]
  - Liver function test increased [Unknown]

NARRATIVE: CASE EVENT DATE: 201612
